FAERS Safety Report 10035896 (Version 2)
Quarter: 2014Q1

REPORT INFORMATION
  Report Type: Report from Study
  Country: PL (occurrence: PL)
  Receive Date: 20140325
  Receipt Date: 20140326
  Transmission Date: 20141002
  Serious: Yes (Other)
  Sender: FDA-Public Use
  Company Number: PL-VERTEX PHARMACEUTICALS INC-2014-001504

PATIENT
  Age: 64 Year
  Sex: Female

DRUGS (9)
  1. VX-950 (TELAPREVIR) [Suspect]
     Indication: HEPATITIS C
     Dosage: 2250 MG, UNK
     Route: 048
     Dates: start: 20130829, end: 20130912
  2. PEGINTERFERON ALFA-2A [Suspect]
     Indication: HEPATITIS C
     Dosage: DOSAGE FORM: SOLUTION
     Route: 058
     Dates: start: 20130829
  3. PEGINTERFERON LAMBDA-1A [Suspect]
     Indication: HEPATITIS C
     Dosage: DOSAGE FORM: SOLUTION
     Route: 058
     Dates: start: 20130829
  4. RIBAVIRIN [Suspect]
     Indication: HEPATITIS C
     Dosage: DOSAGE FORM: TABLET
     Route: 048
     Dates: start: 20130829
  5. VALSARTAN [Concomitant]
     Indication: HYPERTENSION
     Dosage: UNK
  6. VALSARTAN [Concomitant]
     Dosage: DOSAGE FORM: UNKNOWN
  7. NEBIVOLOL [Concomitant]
     Indication: HYPERTENSION
  8. ACETYLSALICYLIC ACID [Concomitant]
     Indication: HYPERTENSION
  9. SALICYLIC ACID [Concomitant]

REACTIONS (1)
  - Rash [Recovered/Resolved]
